FAERS Safety Report 6443989-1 (Version None)
Quarter: 2009Q4

REPORT INFORMATION
  Report Type: 
  Country: None (occurrence: None)
  Receive Date: 20091116
  Receipt Date: 20091116
  Transmission Date: 20100525
  Serious: Yes (Hospitalization)
  Sender: FDA-Public Use
  Company Number: None

PATIENT
  Age: 56 Year
  Sex: Male

DRUGS (11)
  1. BACTRIM DS [Suspect]
     Indication: FURUNCLE
     Dates: start: 20090914, end: 20090917
  2. ORAMORPH SR [Concomitant]
  3. ASPIRIN [Concomitant]
  4. PLAVIX [Concomitant]
  5. LOVENOX [Concomitant]
  6. ZOCOR [Concomitant]
  7. ALTACE [Concomitant]
  8. TOPROL-XL [Concomitant]
  9. SOMA [Concomitant]
  10. LYRICA [Concomitant]
  11. MIRALAX [Concomitant]

REACTIONS (3)
  - DEHYDRATION [None]
  - FURUNCLE [None]
  - NAUSEA [None]
